FAERS Safety Report 4983666-7 (Version None)
Quarter: 2006Q2

REPORT INFORMATION
  Report Type: 
  Country: None (occurrence: None)
  Receive Date: 20060425
  Receipt Date: 20060425
  Transmission Date: 20061013
  Serious: Yes (Hospitalization)
  Sender: FDA-Public Use
  Company Number: None

PATIENT
  Sex: Male

DRUGS (10)
  1. WARFARIN SODIUM [Suspect]
     Indication: ATRIAL FIBRILLATION
     Dosage: 400 BID
  2. AMIODARONE HCL [Suspect]
     Indication: ATRIAL FIBRILLATION
     Dosage: 2.5 MG
  3. METOPROLOL SUCCINATE [Concomitant]
  4. TERAZOSIN HCL [Concomitant]
  5. DOCUSATE [Concomitant]
  6. LASIX [Concomitant]
  7. TRIAMCINOLONE [Concomitant]
  8. POTASSIUM CHLORIDE [Concomitant]
  9. TRAZODONE HCL [Concomitant]
  10. OMEPRAZOLE [Concomitant]

REACTIONS (4)
  - DRUG ADMINISTRATION ERROR [None]
  - DRUG INTERACTION [None]
  - INTERNATIONAL NORMALISED RATIO INCREASED [None]
  - REFUSAL OF TREATMENT BY PATIENT [None]
